FAERS Safety Report 24116259 (Version 1)
Quarter: 2024Q3

REPORT INFORMATION
  Report Type: Spontaneous
  Country: CA (occurrence: CA)
  Receive Date: 20240722
  Receipt Date: 20240722
  Transmission Date: 20241017
  Serious: Yes (Disabling)
  Sender: NOVO NORDISK
  Company Number: CA-NOVOPROD-1255276

PATIENT
  Sex: Female

DRUGS (3)
  1. TRESIBA [Suspect]
     Active Substance: INSULIN DEGLUDEC
     Indication: Blood glucose abnormal
     Dosage: UNK
  2. TOUJEO [Concomitant]
     Active Substance: INSULIN GLARGINE
     Indication: Blood glucose abnormal
     Dosage: UNK
  3. HUMALOG [Concomitant]
     Active Substance: INSULIN LISPRO
     Indication: Product used for unknown indication
     Dosage: UNK

REACTIONS (8)
  - Disability [Unknown]
  - Chills [Not Recovered/Not Resolved]
  - Diarrhoea [Not Recovered/Not Resolved]
  - Brain fog [Not Recovered/Not Resolved]
  - Illness [Not Recovered/Not Resolved]
  - Pain [Not Recovered/Not Resolved]
  - Vomiting [Not Recovered/Not Resolved]
  - Nausea [Not Recovered/Not Resolved]

NARRATIVE: CASE EVENT DATE: 20240301
